FAERS Safety Report 6175948-0 (Version None)
Quarter: 2009Q2

REPORT INFORMATION
  Report Type: 
  Country: None (occurrence: None)
  Receive Date: 20090501
  Receipt Date: 20090420
  Transmission Date: 20091009
  Serious: Yes (Other)
  Sender: FDA-Public Use
  Company Number: US-PFIZER INC-2008064304

PATIENT
  Sex: Female
  Weight: 74.09 kg

DRUGS (9)
  1. XALATAN [Suspect]
     Indication: GLAUCOMA
     Route: 047
     Dates: start: 20030101
  2. LEXAPRO [Concomitant]
  3. LASIX [Concomitant]
  4. GLYBURIDE [Concomitant]
  5. LISINOPRIL [Concomitant]
  6. ATENOLOL [Concomitant]
  7. LYRICA [Concomitant]
  8. PHENYTOIN [Concomitant]
     Dosage: 300MG DAILY X3 DAYS, 400MG DAILY X4 DAYS
  9. ADVAIR HFA [Concomitant]

REACTIONS (2)
  - EYE SWELLING [None]
  - MENINGIOMA [None]
